FAERS Safety Report 9458807 (Version 2)
Quarter: 2013Q3

REPORT INFORMATION
  Report Type: Report from Study
  Country: BE (occurrence: BE)
  Receive Date: 20130814
  Receipt Date: 20130826
  Transmission Date: 20140515
  Serious: Yes (Hospitalization)
  Sender: FDA-Public Use
  Company Number: BE-GLAXOSMITHKLINE-A0993534A

PATIENT
  Age: 53 Year
  Sex: Male
  Weight: 60.2 kg

DRUGS (10)
  1. TRAMETINIB [Suspect]
     Indication: NEOPLASM
     Dosage: 1MG PER DAY
     Route: 048
     Dates: start: 20120710
  2. INVESTIGATIONAL STUDY DRUG [Suspect]
     Indication: NEOPLASM
     Dosage: 60MG PER DAY
     Route: 048
     Dates: start: 20120710
  3. SALAZOPYRINE [Concomitant]
  4. SYMBICORT [Concomitant]
  5. XYZALL [Concomitant]
  6. ACETYLSALICYLIC ACID [Concomitant]
  7. EMCONCOR [Concomitant]
  8. METRONIDAZOLE [Concomitant]
  9. MINOCYCLINE [Concomitant]
  10. PANTOPRAZOLE [Concomitant]

REACTIONS (2)
  - Cytomegalovirus infection [Recovered/Resolved]
  - Aspergillus infection [Recovered/Resolved]
